FAERS Safety Report 8622156-7 (Version None)
Quarter: 2012Q3

REPORT INFORMATION
  Report Type: 
  Country: None (occurrence: None)
  Receive Date: 20120826
  Receipt Date: 20111024
  Transmission Date: 20120928
  Serious: Yes (Hospitalization, Other)
  Sender: FDA-Public Use
  Company Number: PHHY2011CA11611

PATIENT
  Sex: Male

DRUGS (2)
  1. SANDOSTATIN LAR [Suspect]
     Dosage: 40 MG, EVERY 3 WEEKS
     Route: 030
  2. SANDOSTATIN LAR [Suspect]
     Indication: SMALL INTESTINE CARCINOMA
     Dosage: 40 MG, EVERY 4 WEEKS
     Route: 030
     Dates: start: 20090302

REACTIONS (5)
  - ABDOMINAL PAIN LOWER [None]
  - VIRAL INFECTION [None]
  - WEIGHT DECREASED [None]
  - HEADACHE [None]
  - CACHEXIA [None]
